FAERS Safety Report 7999075-2 (Version None)
Quarter: 2011Q4

REPORT INFORMATION
  Report Type: 
  Country: None (occurrence: None)
  Receive Date: 20111221
  Receipt Date: 20111028
  Transmission Date: 20120403
  Serious: Yes (Other)
  Sender: FDA-Public Use
  Company Number: US-PURDUE-USA-2011-0079770

PATIENT
  Sex: Female

DRUGS (1)
  1. OXYCONTIN [Suspect]
     Indication: SPINAL OPERATION
     Dosage: UNK
     Dates: start: 20070101, end: 20100228

REACTIONS (3)
  - DRUG DEPENDENCE [None]
  - CEREBROVASCULAR ACCIDENT [None]
  - CEREBRAL PALSY [None]
